FAERS Safety Report 13465834 (Version 1)
Quarter: 2017Q2

REPORT INFORMATION
  Report Type: Report from Study
  Country: IN (occurrence: IN)
  Receive Date: 20170421
  Receipt Date: 20170421
  Transmission Date: 20170830
  Serious: Yes (Death)
  Sender: FDA-Public Use
  Company Number: IN-CIPLA LTD.-2017IN02698

PATIENT

DRUGS (1)
  1. ERLOCIP [Suspect]
     Active Substance: ERLOTINIB
     Indication: THROAT CANCER
     Dosage: 150 MG, QD
     Route: 048
     Dates: start: 20161111

REACTIONS (1)
  - Death [Fatal]
